FAERS Safety Report 4409348-8 (Version None)
Quarter: 2004Q3

REPORT INFORMATION
  Report Type: 
  Country: None (occurrence: None)
  Receive Date: 20040722
  Receipt Date: 20040714
  Transmission Date: 20050211
  Serious: No
  Sender: FDA-Public Use
  Company Number: 04H-163-0266966-00

PATIENT
  Age: 63 Year
  Sex: Female

DRUGS (8)
  1. QUELICIN INJECTION (SUCCINYLCHOLINE CHLORIDE INJECTION) (SUCCINYLCHOLI [Suspect]
     Indication: ANAESTHESIA
     Dosage: 80 MG, TWICE, INTRAVENOUS
     Route: 042
  2. DIGOXIN [Suspect]
     Dosage: 0.25 MG, 2 X DAY
  3. CALCIUM GLUCONATE [Concomitant]
  4. MORPHINE SULFATE [Concomitant]
  5. DIAZEPAM [Concomitant]
  6. ATROPINE [Concomitant]
  7. OXYGEN [Concomitant]
  8. THIAMYLAL SODIUM [Concomitant]

REACTIONS (7)
  - ANAESTHETIC COMPLICATION CARDIAC [None]
  - BRADYCARDIA [None]
  - CYANOSIS [None]
  - DRUG INTERACTION [None]
  - PULSE ABSENT [None]
  - VENTRICULAR EXTRASYSTOLES [None]
  - VENTRICULAR FIBRILLATION [None]
